FAERS Safety Report 7646219-8 (Version None)
Quarter: 2011Q3

REPORT INFORMATION
  Report Type: 
  Country: None (occurrence: None)
  Receive Date: 20110801
  Receipt Date: 20110721
  Transmission Date: 20111222
  Serious: No
  Sender: FDA-Public Use
  Company Number: US-BIOGENIDEC-2011BI027590

PATIENT
  Sex: Female

DRUGS (2)
  1. TYSABRI [Suspect]
     Indication: MULTIPLE SCLEROSIS
     Route: 042
     Dates: start: 20110301
  2. TYSABRI [Suspect]
     Route: 042
     Dates: start: 20080107, end: 20100629

REACTIONS (2)
  - COGNITIVE DISORDER [None]
  - ASTHENIA [None]
